FAERS Safety Report 19455064 (Version 2)
Quarter: 2021Q3

REPORT INFORMATION
  Report Type: Report from Study
  Country: BE (occurrence: BE)
  Receive Date: 20210623
  Receipt Date: 20210723
  Transmission Date: 20211014
  Serious: Yes (Other)
  Sender: FDA-Public Use
  Company Number: BE-PFIZER INC-2021681848

PATIENT
  Age: 77 Year
  Sex: Male
  Weight: 104.4 kg

DRUGS (29)
  1. LIPEGFILGRASTIM [Concomitant]
     Active Substance: LIPEGFILGRASTIM
     Dosage: EVERY MORNING
     Dates: start: 20210506
  2. ALLOPURINOL. [Concomitant]
     Active Substance: ALLOPURINOL
     Dosage: UNK UNK, 1X/DAY
     Dates: start: 2001
  3. MOVICOL [Concomitant]
     Active Substance: POLYETHYLENE GLYCOL 3350\POTASSIUM CHLORIDE\SODIUM BICARBONATE\SODIUM CHLORIDE
     Dosage: PRN
     Dates: start: 20210430, end: 20210505
  4. ACETYLSALICYLIC ACID [Concomitant]
     Active Substance: ASPIRIN
     Dosage: UNK UNK, 1X/DAY
     Dates: start: 2001
  5. FUROSEMIDE. [Concomitant]
     Active Substance: FUROSEMIDE
     Dosage: UNK UNK, 1X/DAY
     Dates: start: 2017
  6. COPERINDO [Concomitant]
     Dosage: UNK UNK, 1X/DAY
     Dates: start: 2006
  7. ALIZAPRIDE [Concomitant]
     Active Substance: ALIZAPRIDE
     Dosage: PRN
     Dates: start: 20210507, end: 20210507
  8. METHYLPREDNISOLONE. [Concomitant]
     Active Substance: METHYLPREDNISOLONE
     Indication: PROPHYLAXIS
     Dosage: 1 DF, MONTHLY
     Dates: start: 20210503
  9. HUMULINE [Concomitant]
     Dosage: UNK UNK, 1X/DAY
     Dates: start: 20210426
  10. TAMSULOSINE [TAMSULOSIN] [Concomitant]
     Active Substance: TAMSULOSIN
     Dosage: UNK, 1X/DAY
     Dates: start: 2018
  11. PANTOPRAZOLE [Concomitant]
     Active Substance: PANTOPRAZOLE
     Indication: PROPHYLAXIS
     Dosage: UNK UNK, 1X/DAY
     Dates: start: 2001
  12. ISOSORBIDE DINITRATE. [Concomitant]
     Active Substance: ISOSORBIDE DINITRATE
     Indication: HYPOKALAEMIA
     Dosage: UNK UNK, SINGLE
     Dates: start: 20210504, end: 20210504
  13. CARBOPLATIN. [Suspect]
     Active Substance: CARBOPLATIN
     Dosage: 675 MG
     Route: 065
     Dates: start: 20210503
  14. KLISTIER [Concomitant]
     Dosage: UNK UNK, SINGLE
     Dates: start: 20210504, end: 20210504
  15. IPRATROPIUM BROMIDE. [Concomitant]
     Active Substance: IPRATROPIUM BROMIDE
     Indication: LUNG NEOPLASM MALIGNANT
     Dosage: UNK, 1X/DAY
     Dates: start: 20210426, end: 20210512
  16. CETIRIZINE [Concomitant]
     Active Substance: CETIRIZINE HYDROCHLORIDE
     Dosage: PRN
     Dates: start: 202003
  17. ATEZOLIZUMAB. [Suspect]
     Active Substance: ATEZOLIZUMAB
     Indication: SMALL CELL LUNG CANCER EXTENSIVE STAGE
     Dosage: 1200 MG
     Route: 041
     Dates: start: 20210503
  18. ETOPOSIDE. [Suspect]
     Active Substance: ETOPOSIDE
     Indication: SMALL CELL LUNG CANCER EXTENSIVE STAGE
     Dosage: 181 MG
     Route: 048
     Dates: start: 20210503
  19. UREUM [Concomitant]
     Dosage: UNK, 1X/DAY
     Dates: start: 202003
  20. LANSOYL [Concomitant]
     Active Substance: MINERAL OIL
     Dosage: PRN
     Dates: start: 2006
  21. PARACETAMOL [Concomitant]
     Active Substance: ACETAMINOPHEN
     Dosage: PRN
     Dates: start: 20210503, end: 20210505
  22. TACROLIMUS. [Concomitant]
     Active Substance: TACROLIMUS
     Dosage: UNK, 2X/DAY
     Dates: start: 20210205
  23. BACLOFEN. [Concomitant]
     Active Substance: BACLOFEN
     Dosage: UNK, 1X/DAY
     Dates: start: 20070110
  24. METFORMINE [METFORMIN] [Concomitant]
     Active Substance: METFORMIN HYDROCHLORIDE
     Dosage: UNK UNK, 2X/DAY
     Dates: start: 2016
  25. PREGABALINE [Concomitant]
     Active Substance: PREGABALIN
     Dosage: UNK UNK, 2X/DAY
     Dates: start: 2017
  26. MAGNESIUM [Concomitant]
     Active Substance: MAGNESIUM
     Indication: PROPHYLAXIS
     Dosage: UNK UNK, 1X/DAY
     Dates: start: 202101
  27. AKYNZEO [Concomitant]
     Active Substance: NETUPITANT\PALONOSETRON HYDROCHLORIDE
     Indication: PROPHYLAXIS
     Dosage: 1 DF, MONTHLY
     Dates: start: 20210503
  28. BETAHISTINE [Concomitant]
     Active Substance: BETAHISTINE
     Dosage: UNK, 1X/DAY
     Dates: start: 2016
  29. ENOXAPARINE SODIQUE [Concomitant]
     Active Substance: ENOXAPARIN SODIUM
     Indication: PROPHYLAXIS
     Dosage: UNK UNK, 1X/DAY
     Dates: start: 20210428, end: 20210509

REACTIONS (1)
  - Hypokalaemia [Recovering/Resolving]

NARRATIVE: CASE EVENT DATE: 20210510
